FAERS Safety Report 4425004-4 (Version None)
Quarter: 2004Q3

REPORT INFORMATION
  Report Type: 
  Country: None (occurrence: None)
  Receive Date: 20040811
  Receipt Date: 20040811
  Transmission Date: 20050211
  Serious: Yes (Hospitalization)
  Sender: FDA-Public Use
  Company Number: None

PATIENT
  Age: 58 Year
  Sex: Female
  Weight: 86.1834 kg

DRUGS (2)
  1. REMICADE [Suspect]
     Indication: SERONEGATIVE ARTHRITIS
     Dosage: 200 MG EVERY 6 WE IV
     Route: 042
     Dates: start: 20040419, end: 20040804
  2. METHOTREXATE [Concomitant]

REACTIONS (2)
  - DEEP VEIN THROMBOSIS [None]
  - PULMONARY EMBOLISM [None]
